FAERS Safety Report 4569930-4 (Version None)
Quarter: 2005Q1

REPORT INFORMATION
  Report Type: 
  Country: None (occurrence: None)
  Receive Date: 20050131
  Receipt Date: 20050117
  Transmission Date: 20050727
  Serious: Yes (Other)
  Sender: FDA-Public Use
  Company Number: 2005-124455-NL

PATIENT
  Age: 61 Year
  Sex: Male
  Weight: 100 kg

DRUGS (10)
  1. REMERON [Suspect]
     Indication: DEPRESSION
     Dosage: 45 MG QD ORAL
     Route: 048
  2. INTRON A [Suspect]
     Indication: MALIGNANT MELANOMA STAGE III
     Dosage: 44 MIU INTRAVENOUS (NOS)
     Route: 042
     Dates: start: 20041115, end: 20041221
  3. WELLBUTRIN [Suspect]
     Indication: DEPRESSION
     Dosage: 300 MG BID ORAL
     Route: 048
     Dates: start: 20041116
  4. ALLOPURINOL [Suspect]
     Indication: GOUT
     Dosage: 100 MG QD ORAL
     Route: 048
  5. CLONAZEPAM [Suspect]
     Indication: DEPRESSION
     Dosage: 0.5 MG QD ORAL
     Route: 048
  6. TRAZODONE [Suspect]
     Indication: DEPRESSION
     Dosage: 50 MG QD ORAL
     Route: 048
  7. ZOCOR [Suspect]
     Indication: BLOOD CHOLESTEROL INCREASED
     Dosage: 10 MG QD ORAL
     Route: 048
  8. GLUCOSAMINE [Suspect]
     Dosage: DF PRN ORAL
  9. MULTI-VITAMINS [Suspect]
     Dosage: DF PRN ORAL
     Route: 048
  10. COMPAZINE [Suspect]
     Indication: NAUSEA
     Dosage: 10 MG PRN ORAL
     Route: 048
     Dates: start: 20041115

REACTIONS (10)
  - ASTHENIA [None]
  - CONFUSIONAL STATE [None]
  - DECREASED APPETITE [None]
  - DEHYDRATION [None]
  - DEPRESSION [None]
  - DRUG INTERACTION [None]
  - LETHARGY [None]
  - MALIGNANT MELANOMA STAGE III [None]
  - NAUSEA [None]
  - ORAL INTAKE REDUCED [None]
